FAERS Safety Report 20998436 (Version 2)
Quarter: 2022Q3

REPORT INFORMATION
  Report Type: Spontaneous
  Country: US (occurrence: US)
  Receive Date: 20220623
  Receipt Date: 20220831
  Transmission Date: 20221027
  Serious: Yes (Other)
  Sender: FDA-Public Use
  Company Number: US-NOVARTISPH-NVSC2022US143761

PATIENT

DRUGS (3)
  1. INDOMETHACIN [Suspect]
     Active Substance: INDOMETHACIN
     Indication: Foetal exposure during pregnancy
     Dosage: MATERNAL EXPOSURE DURING PREGNANCY: 100 MG, LOADING DOSE
     Route: 064
  2. INDOMETHACIN [Suspect]
     Active Substance: INDOMETHACIN
     Dosage: MATERNAL EXPOSURE DURING PREGNANCY: 50 MG, Q6H, FOR 48 HOURS
     Route: 064
  3. INDOMETHACIN [Suspect]
     Active Substance: INDOMETHACIN
     Dosage: MATERNAL EXPOSURE DURING PREGNANCY: 25 MG, Q6H, MAINTENANCE DOSE
     Route: 064

REACTIONS (2)
  - Premature baby [Unknown]
  - Foetal exposure during pregnancy [Unknown]
